FAERS Safety Report 19080569 (Version 1)
Quarter: 2021Q1

REPORT INFORMATION
  Report Type: Spontaneous
  Country: GR (occurrence: GR)
  Receive Date: 20210331
  Receipt Date: 20210331
  Transmission Date: 20210420
  Serious: Yes (Other)
  Sender: FDA-Public Use
  Company Number: GR-UCBSA-2021013875

PATIENT

DRUGS (1)
  1. BRIVARACETAM [Suspect]
     Active Substance: BRIVARACETAM
     Indication: EPILEPSY
     Dosage: INITIAL DOSE GREATER THAN 100MG

REACTIONS (8)
  - Drug ineffective [Unknown]
  - Somnolence [Unknown]
  - Depression [Unknown]
  - Irritability [Unknown]
  - Hypersensitivity [Unknown]
  - Seizure [Unknown]
  - Diplopia [Unknown]
  - Off label use [Unknown]
